FAERS Safety Report 24739463 (Version 1)
Quarter: 2024Q4

REPORT INFORMATION
  Report Type: Spontaneous
  Country: US (occurrence: US)
  Receive Date: 20241216
  Receipt Date: 20241216
  Transmission Date: 20250115
  Serious: No
  Sender: CALLIDITAS THERAPEUTICS AB
  Company Number: US-Calliditas-2024CAL02890

PATIENT
  Age: 58 Year
  Sex: Male

DRUGS (11)
  1. TARPEYO [Suspect]
     Active Substance: BUDESONIDE
     Indication: Haematuria
     Route: 048
     Dates: start: 20241210
  2. ALLOPURINOL [Concomitant]
     Active Substance: ALLOPURINOL
  3. OTEZLA [Concomitant]
     Active Substance: APREMILAST
  4. ATORVASTATIN [Concomitant]
     Active Substance: ATORVASTATIN
  5. CLOBETASOL [Concomitant]
     Active Substance: CLOBETASOL
  6. FARXIGA [Concomitant]
     Active Substance: DAPAGLIFLOZIN PROPANEDIOL
  7. HYRIMOZ [Concomitant]
     Active Substance: ADALIMUMAB-ADAZ
  8. LORATADINE [Concomitant]
     Active Substance: LORATADINE
  9. LOSARTAN [Concomitant]
     Active Substance: LOSARTAN
  10. VIAGRA [Concomitant]
     Active Substance: SILDENAFIL CITRATE
  11. JANUVIA [Concomitant]
     Active Substance: SITAGLIPTIN PHOSPHATE

REACTIONS (2)
  - Accidental underdose [Recovered/Resolved]
  - Off label use [Unknown]

NARRATIVE: CASE EVENT DATE: 20241210
